FAERS Safety Report 8262695 (Version 7)
Quarter: 2013Q3

REPORT INFORMATION
  Report Type: Report from Study
  Country: IT (occurrence: IT)
  Receive Date: 20111124
  Receipt Date: 20130710
  Transmission Date: 20140515
  Serious: Yes (Hospitalization, Other)
  Sender: FDA-Public Use
  Company Number: IT-PFIZER INC-2011284035

PATIENT
  Age: 48 Year
  Sex: Female

DRUGS (9)
  1. CRIZOTINIB [Suspect]
     Indication: LUNG ADENOCARCINOMA METASTATIC
     Dosage: 200 MG, 2X/DAY (EVERY 12 HOURS)
     Route: 048
     Dates: start: 20110105, end: 20111127
  2. CRIZOTINIB [Suspect]
     Dosage: 250 MG, 2X/DAY (EVERY 12 HOURS)
     Dates: start: 20111128
  3. RANITIDINE [Concomitant]
     Dosage: 150 MG, EVERY 12 HOURS
     Dates: start: 201101
  4. LEVETIRACETAM [Concomitant]
     Dosage: 500 MG, EVERY 12 HOURS
     Route: 048
     Dates: start: 20111030
  5. AMILORIDE HCL W/HYDROCHLOROTHIAZIDE [Concomitant]
     Dosage: 1 DF, 1X/DAY
     Route: 048
  6. CALCIUM CARBONATE [Concomitant]
     Dosage: 1000 MG, UNK
     Route: 048
  7. COLECALCIFEROL [Concomitant]
     Dosage: 1 DF,  EVERY 2 WEEKS
  8. MACROGOL [Concomitant]
     Dosage: 17.5 G, 2X/DAY
  9. FENTANYL CITRATE [Concomitant]
     Dosage: 25 MCG/H EVERY 72 HOURS
     Route: 062

REACTIONS (14)
  - Asthenia [Recovering/Resolving]
  - Oedema peripheral [Recovering/Resolving]
  - Constipation [Recovering/Resolving]
  - Haemoptysis [Recovered/Resolved]
  - Lymphopenia [Recovered/Resolved]
  - Thrombocytopenia [Recovering/Resolving]
  - Leukopenia [Recovered/Resolved]
  - Alanine aminotransferase increased [Recovering/Resolving]
  - Pneumonia [Recovering/Resolving]
  - Deep vein thrombosis [Not Recovered/Not Resolved]
  - Hypoalbuminaemia [Recovering/Resolving]
  - Hypofibrinogenaemia [Recovered/Resolved]
  - Hypopituitarism [Not Recovered/Not Resolved]
  - Epistaxis [Recovered/Resolved]
